FAERS Safety Report 15478627 (Version 1)
Quarter: 2018Q4

REPORT INFORMATION
  Report Type: Spontaneous
  Country: US (occurrence: US)
  Receive Date: 20181003
  Receipt Date: 20181003
  Transmission Date: 20190205
  Serious: Yes (Hospitalization)
  Sender: FDA-Public Use
  Company Number: None

PATIENT
  Age: 54 Year
  Sex: Female

DRUGS (8)
  1. FOLIC ACID. [Concomitant]
     Active Substance: FOLIC ACID
  2. NEURONTIN [Concomitant]
     Active Substance: GABAPENTIN
  3. VITAMIN D [Concomitant]
     Active Substance: CHOLECALCIFEROL
  4. ARAVA [Concomitant]
     Active Substance: LEFLUNOMIDE
  5. OTEZLA [Concomitant]
     Active Substance: APREMILAST
  6. HUMIRA [Suspect]
     Active Substance: ADALIMUMAB
     Indication: PSORIATIC ARTHROPATHY
     Route: 058
     Dates: start: 20130816
  7. VIMOVO [Concomitant]
     Active Substance: ESOMEPRAZOLE MAGNESIUM\NAPROXEN
  8. ZESTRIL [Concomitant]
     Active Substance: LISINOPRIL

REACTIONS (6)
  - Rash [None]
  - Condition aggravated [None]
  - Discomfort [None]
  - Surgery [None]
  - Swelling [None]
  - Pain [None]

NARRATIVE: CASE EVENT DATE: 20180820
